FAERS Safety Report 9397086 (Version 1)
Quarter: 2013Q3

REPORT INFORMATION
  Report Type: Spontaneous
  Country: US (occurrence: None)
  Receive Date: 20130710
  Receipt Date: 20130710
  Transmission Date: 20140515
  Serious: Yes (Other)
  Sender: FDA-Public Use
  Company Number: None

PATIENT
  Age: 3 Year
  Sex: Male
  Weight: 18.14 kg

DRUGS (1)
  1. HYLANDS NIGHTTIME COLD N COUGH 4 KID [Suspect]
     Dosage: 1 TEASPOON EVERY 4 HRS OVER NIGHT, AS NEEDED.
     Route: 048
     Dates: start: 20130630

REACTIONS (4)
  - Swelling face [None]
  - Lip swelling [None]
  - Ear swelling [None]
  - Rash [None]
